FAERS Safety Report 13034998 (Version 1)
Quarter: 2016Q4

REPORT INFORMATION
  Report Type: Spontaneous
  Country: US (occurrence: US)
  Receive Date: 20161216
  Receipt Date: 20161216
  Transmission Date: 20170207
  Serious: Yes (Death)
  Sender: FDA-Public Use
  Company Number: US-SAGENTPRD-2016-US-000093

PATIENT
  Age: 75 Year
  Sex: Female

DRUGS (1)
  1. DOXORUBICIN HYDROCHLORIDE INJECTION, USP [Suspect]
     Active Substance: DOXORUBICIN HYDROCHLORIDE
     Dosage: UNKNOWN

REACTIONS (4)
  - Palmar erythema [Fatal]
  - Toxic skin eruption [Fatal]
  - Oedema [Fatal]
  - Skin exfoliation [Fatal]
